FAERS Safety Report 21722903 (Version 1)
Quarter: 2022Q4

REPORT INFORMATION
  Report Type: Spontaneous
  Country: BR (occurrence: BR)
  Receive Date: 20221213
  Receipt Date: 20221213
  Transmission Date: 20230113
  Serious: Yes (Hospitalization, Other)
  Sender: FDA-Public Use
  Company Number: BR-GLAXOSMITHKLINE-BR2022AMR150408

PATIENT

DRUGS (3)
  1. NUCALA [Suspect]
     Active Substance: MEPOLIZUMAB
     Indication: Asthma
     Dosage: UNK
     Dates: start: 20221013
  2. NUCALA [Suspect]
     Active Substance: MEPOLIZUMAB
     Indication: Asthma
     Dosage: UNK
  3. ALBUTEROL [Suspect]
     Active Substance: ALBUTEROL
     Indication: Pneumonia bacterial
     Dosage: UNK

REACTIONS (12)
  - Lung disorder [Unknown]
  - Pneumonia [Unknown]
  - Pneumonia bacterial [Not Recovered/Not Resolved]
  - Blood pressure increased [Not Recovered/Not Resolved]
  - Dyspnoea [Recovering/Resolving]
  - Malaise [Unknown]
  - Fatigue [Not Recovered/Not Resolved]
  - Traumatic lung injury [Unknown]
  - Blood cholesterol increased [Not Recovered/Not Resolved]
  - Loss of personal independence in daily activities [Unknown]
  - Condition aggravated [Unknown]
  - Product use in unapproved indication [Unknown]

NARRATIVE: CASE EVENT DATE: 20221001
